FAERS Safety Report 20105179 (Version 1)
Quarter: 2021Q4

REPORT INFORMATION
  Report Type: Spontaneous
  Country: CN (occurrence: None)
  Receive Date: 20211124
  Receipt Date: 20211124
  Transmission Date: 20220303
  Serious: Yes (Other)
  Sender: FDA-Public Use
  Company Number: CN-ROCHE-2957910

PATIENT
  Age: 57 Year
  Sex: Male

DRUGS (10)
  1. ALECENSA [Suspect]
     Active Substance: ALECTINIB HYDROCHLORIDE
     Indication: Non-small cell lung cancer
     Route: 065
  2. ALECENSA [Suspect]
     Active Substance: ALECTINIB HYDROCHLORIDE
     Route: 065
     Dates: start: 20200816
  3. ALECENSA [Suspect]
     Active Substance: ALECTINIB HYDROCHLORIDE
     Route: 065
  4. ALECENSA [Suspect]
     Active Substance: ALECTINIB HYDROCHLORIDE
     Route: 065
     Dates: start: 20210116
  5. ENSARTINIB [Concomitant]
     Active Substance: ENSARTINIB
     Indication: Non-small cell lung cancer
     Route: 065
     Dates: start: 20201028
  6. PEMETREXED [Concomitant]
     Active Substance: PEMETREXED
     Indication: Non-small cell lung cancer
     Route: 065
     Dates: start: 20210228
  7. VITAMIN B12 [Concomitant]
     Active Substance: CYANOCOBALAMIN
     Indication: Non-small cell lung cancer
  8. FOLIC ACID [Concomitant]
     Active Substance: FOLIC ACID
     Indication: Non-small cell lung cancer
  9. CISPLATIN [Concomitant]
     Active Substance: CISPLATIN
     Indication: Non-small cell lung cancer
     Dates: start: 20210228
  10. ENDOSTATIN [Concomitant]
     Active Substance: ENDOSTATIN
     Indication: Non-small cell lung cancer

REACTIONS (4)
  - Dizziness [Unknown]
  - Troponin increased [Unknown]
  - Hypotension [Unknown]
  - Myocardial injury [Unknown]
